FAERS Safety Report 12223174 (Version 3)
Quarter: 2016Q2

REPORT INFORMATION
  Report Type: Report from Study
  Country: TR (occurrence: TR)
  Receive Date: 20160330
  Receipt Date: 20160412
  Transmission Date: 20160815
  Serious: Yes (Death, Hospitalization)
  Sender: FDA-Public Use
  Company Number: TR-B.I. PHARMACEUTICALS,INC./RIDGEFIELD-2016-BI-18353TK

PATIENT
  Age: 66 Year
  Sex: Female
  Weight: 60 kg

DRUGS (1)
  1. BIBF 1120 [Suspect]
     Active Substance: NINTEDANIB
     Indication: NON-SMALL CELL LUNG CANCER
     Dosage: DOSE PER APP AND DAILY DOSE: 2X2TH
     Route: 048
     Dates: start: 20160209, end: 20160315

REACTIONS (2)
  - Hyponatraemia [Recovered/Resolved]
  - Aspiration [Fatal]

NARRATIVE: CASE EVENT DATE: 20160319
